FAERS Safety Report 7659300-4 (Version None)
Quarter: 2011Q3

REPORT INFORMATION
  Report Type: 
  Country: None (occurrence: None)
  Receive Date: 20110805
  Receipt Date: 20110725
  Transmission Date: 20111222
  Serious: Yes (Other)
  Sender: FDA-Public Use
  Company Number: US-ROCHE-792946

PATIENT
  Age: 58 Year
  Sex: Male

DRUGS (3)
  1. TEMOZOLOMIDE [Concomitant]
  2. TEMOZOLOMIDE [Concomitant]
     Dosage: ON DAYS 1-7 AND 15-21
  3. ISOTRETINOIN [Suspect]
     Indication: GLIOBLASTOMA
     Dosage: ON DAYS 1-21 DAYS OF A 28 DAY CYCLE
     Route: 065

REACTIONS (1)
  - LARGE INTESTINE PERFORATION [None]
